FAERS Safety Report 6565457-9 (Version None)
Quarter: 2010Q1

REPORT INFORMATION
  Report Type: 
  Country: None (occurrence: None)
  Receive Date: 20100201
  Receipt Date: 20100126
  Transmission Date: 20100710
  Serious: Yes (Hospitalization)
  Sender: FDA-Public Use
  Company Number: PHHO2009US13622

PATIENT
  Sex: Male

DRUGS (6)
  1. AFINITOR [Suspect]
     Indication: METASTATIC RENAL CELL CARCINOMA
     Dosage: 10MG, DAILY
     Route: 048
     Dates: start: 20090901, end: 20091026
  2. BEVACIZUMAB [Concomitant]
     Indication: METASTATIC RENAL CELL CARCINOMA
     Dosage: 10MG/KG
     Route: 042
     Dates: start: 20090901, end: 20091013
  3. FERROUS SULFATE TAB [Concomitant]
  4. NORVASC [Concomitant]
  5. FOSAMAX [Concomitant]
  6. FLOMAX [Concomitant]

REACTIONS (14)
  - BLOOD ALBUMIN DECREASED [None]
  - BLOOD CREATININE INCREASED [None]
  - FATIGUE [None]
  - HAEMATURIA [None]
  - HAEMOLYTIC ANAEMIA [None]
  - HAEMOLYTIC URAEMIC SYNDROME [None]
  - HYPERBILIRUBINAEMIA [None]
  - NEPHROTIC SYNDROME [None]
  - OEDEMA PERIPHERAL [None]
  - PLASMAPHERESIS [None]
  - PROTEINURIA [None]
  - RED BLOOD CELL SCHISTOCYTES PRESENT [None]
  - THROMBOCYTOPENIA [None]
  - WEIGHT INCREASED [None]
